FAERS Safety Report 9915008 (Version 2)
Quarter: 2014Q1

REPORT INFORMATION
  Report Type: Spontaneous
  Country: CN (occurrence: CN)
  Receive Date: 20140220
  Receipt Date: 20140328
  Transmission Date: 20141002
  Serious: Yes (Other)
  Sender: FDA-Public Use
  Company Number: CN-ABBVIE-14P-035-1204006-00

PATIENT
  Age: 4 Year
  Sex: Female

DRUGS (3)
  1. DEPAKINE [Suspect]
     Indication: EPILEPSY
     Route: 048
     Dates: start: 201111
  2. DEPAKINE [Suspect]
     Route: 048
     Dates: start: 201312
  3. DEPAKINE [Suspect]
     Route: 048
     Dates: start: 20140212

REACTIONS (6)
  - Product counterfeit [Recovered/Resolved]
  - Epilepsy [Recovered/Resolved]
  - Fall [Recovered/Resolved]
  - Syncope [Recovered/Resolved]
  - Convulsion [Recovered/Resolved]
  - Pyrexia [Recovered/Resolved]
